FAERS Safety Report 21123741 (Version 1)
Quarter: 2022Q3

REPORT INFORMATION
  Report Type: Spontaneous
  Country: GB (occurrence: GB)
  Receive Date: 20220725
  Receipt Date: 20220725
  Transmission Date: 20221027
  Serious: Yes (Disabling, Other)
  Sender: FDA-Public Use
  Company Number: GB-MHRA-INP4E33DC7A-F58A-49F2-A5CB-8077E49DA1B3

PATIENT
  Age: 73 Year
  Sex: Male
  Weight: 90.26 kg

DRUGS (2)
  1. NITROFURANTOIN [Suspect]
     Active Substance: NITROFURANTOIN
     Indication: Urinary tract infection
     Dosage: 50 MILLIGRAM, TWO TIMES A DAY
     Route: 048
     Dates: start: 20200901
  2. Hydromol [Concomitant]
     Indication: Product used for unknown indication
     Dosage: UNK (USE GENEROUSLY AS SECOND APPLICATION)
     Route: 065
     Dates: start: 20220407

REACTIONS (1)
  - Interstitial lung disease [Not Recovered/Not Resolved]

NARRATIVE: CASE EVENT DATE: 20210127
